FAERS Safety Report 13966284 (Version 4)
Quarter: 2017Q4

REPORT INFORMATION
  Report Type: Spontaneous
  Country: CN (occurrence: CN)
  Receive Date: 20170913
  Receipt Date: 20171121
  Transmission Date: 20180320
  Serious: Yes (Other)
  Sender: FDA-Public Use
  Company Number: CN-ABBVIE-17P-035-2099586-00

PATIENT
  Age: 5 Year
  Sex: Female

DRUGS (5)
  1. DEPAKINE [Suspect]
     Active Substance: VALPROATE SODIUM
     Route: 048
     Dates: start: 20170314, end: 201705
  2. DEPAKINE CHRONO [Suspect]
     Active Substance: VALPROATE SODIUM
     Indication: EPILEPSY
     Dosage: EXTENDED RELEASE
     Route: 048
     Dates: start: 20170516
  3. CARBAMAZEPINE. [Concomitant]
     Active Substance: CARBAMAZEPINE
     Indication: PRODUCT USED FOR UNKNOWN INDICATION
     Dates: start: 20170314
  4. CHLORPHENAMINE MALEATE W/NITRAZEPAM/PHENOBARB [Concomitant]
     Active Substance: CHLORPHENIRAMINE\NITRAZEPAM\PHENOBARBITAL\PHENYLPROPANOLAMINE\PYRIDOXINE
     Indication: PRODUCT USED FOR UNKNOWN INDICATION
     Dates: start: 2013, end: 20170314
  5. DEPAKINE [Suspect]
     Active Substance: VALPROATE SODIUM
     Indication: EPILEPSY
     Route: 048
     Dates: start: 2007, end: 2013

REACTIONS (14)
  - Urinary incontinence [Unknown]
  - Eye movement disorder [Recovered/Resolved]
  - Muscle spasms [Recovered/Resolved]
  - Product counterfeit [Unknown]
  - Epilepsy [Unknown]
  - Amenorrhoea [Unknown]
  - Tic [Recovered/Resolved]
  - Weight increased [Unknown]
  - Epilepsy [Unknown]
  - Epilepsy [Recovered/Resolved]
  - Muscle spasticity [Recovered/Resolved]
  - Head titubation [Recovered/Resolved]
  - Dysphagia [Not Recovered/Not Resolved]
  - Drug administration error [Unknown]

NARRATIVE: CASE EVENT DATE: 2009
